FAERS Safety Report 16528066 (Version 1)
Quarter: 2019Q3

REPORT INFORMATION
  Report Type: Spontaneous
  Country: GB (occurrence: GB)
  Receive Date: 20190704
  Receipt Date: 20190704
  Transmission Date: 20191004
  Serious: Yes (Other)
  Sender: FDA-Public Use
  Company Number: GB-TEVA-2019-GB-1072709

PATIENT
  Age: 72 Year
  Sex: Female
  Weight: 70 kg

DRUGS (3)
  1. BISOPROLOL [Concomitant]
     Active Substance: BISOPROLOL
     Dosage: AS DIRECTED BY THE HOSPITAL.
     Dates: start: 20190103
  2. SALBUTAMOL [Suspect]
     Active Substance: ALBUTEROL
     Route: 055
     Dates: start: 20190607
  3. APIXABAN [Concomitant]
     Active Substance: APIXABAN
     Dates: start: 20180817

REACTIONS (1)
  - Lip swelling [Recovered/Resolved]

NARRATIVE: CASE EVENT DATE: 20190607
